FAERS Safety Report 7395065-1 (Version None)
Quarter: 2011Q2

REPORT INFORMATION
  Report Type: 
  Country: None (occurrence: None)
  Receive Date: 20110405
  Receipt Date: 20110330
  Transmission Date: 20111010
  Serious: Yes (Disabling)
  Sender: FDA-Public Use
  Company Number: GB-MERCK-1104GBR00001

PATIENT
  Age: 60 Year
  Sex: Male
  Weight: 81 kg

DRUGS (15)
  1. PIZOTYLINE [Concomitant]
     Route: 065
     Dates: start: 20101215, end: 20110126
  2. ZETIA [Suspect]
     Route: 048
  3. BETAHISTINE [Concomitant]
     Route: 065
     Dates: start: 20110222
  4. ZOCOR [Concomitant]
     Route: 048
     Dates: start: 20101229
  5. ISOSORBIDE MONONITRATE [Concomitant]
     Route: 065
  6. ACETAMINOPHEN AND CODEINE PHOSPHATE [Concomitant]
     Route: 065
     Dates: start: 20101229, end: 20110315
  7. DILTIAZEM HYDROCHLORIDE [Concomitant]
     Route: 065
     Dates: start: 20110107
  8. DOMPERIDONE [Concomitant]
     Route: 065
     Dates: start: 20101229
  9. ESOMEPRAZOLE [Concomitant]
     Route: 065
     Dates: start: 20101215
  10. GABAPENTIN [Concomitant]
     Route: 065
     Dates: start: 20101229, end: 20110315
  11. COZAAR [Concomitant]
     Route: 048
     Dates: start: 20101229
  12. ASPIRIN [Concomitant]
     Route: 065
     Dates: start: 20101229
  13. NICORANDIL [Concomitant]
     Route: 065
     Dates: start: 20101229
  14. MUCOPOLYSACCHARIDE POLYSULFATE AND SALICYLIC ACID [Concomitant]
     Route: 065
     Dates: start: 20110107
  15. BENDROFLUMETHIAZIDE [Concomitant]
     Route: 065
     Dates: start: 20101229

REACTIONS (6)
  - ABDOMINAL PAIN [None]
  - FLUSHING [None]
  - BURNING SENSATION [None]
  - DIARRHOEA [None]
  - NAUSEA [None]
  - TREMOR [None]
